FAERS Safety Report 14372822 (Version 1)
Quarter: 2018Q1

REPORT INFORMATION
  Report Type: Spontaneous
  Country: FR (occurrence: FR)
  Receive Date: 20180110
  Receipt Date: 20180110
  Transmission Date: 20180509
  Serious: Yes (Death, Life-Threatening)
  Sender: FDA-Public Use
  Company Number: FR-B. BRAUN MEDICAL INC.-2039839

PATIENT
  Age: 25 Year
  Sex: Female
  Weight: 84 kg

DRUGS (15)
  1. RASBURICASE [Suspect]
     Active Substance: RASBURICASE
     Route: 065
  2. GLUCOSE [Suspect]
     Active Substance: DEXTROSE
     Route: 065
     Dates: start: 20170715
  3. NOREPINEPHRINE. [Suspect]
     Active Substance: NOREPINEPHRINE
     Route: 065
  4. HEPARIN [Concomitant]
     Active Substance: HEPARIN SODIUM
     Route: 065
  5. HEMOSOL BO [Suspect]
     Active Substance: CALCIUM CL\DEXTROSE\LACTIC ACID\MAGNESIUM CL\POTASSIUM CL\SODIUM BICAR\SODIUM CL
     Route: 042
     Dates: start: 20170715, end: 20170715
  6. METHYLPREDNISOLONE. [Concomitant]
     Active Substance: METHYLPREDNISOLONE
     Route: 065
  7. POTASSIUM CHLORIDE FOR INJECTION CONCENTRATE USP 0264-1940-20 [Suspect]
     Active Substance: POTASSIUM CHLORIDE
     Indication: TUMOUR LYSIS SYNDROME
     Route: 042
     Dates: start: 20170715, end: 20170715
  8. PHOXILIUM [Suspect]
     Active Substance: CALCIUM CL\MAGNESIUM CL\POTASSIUM CL\SODIUM BICAR\SODIUM CL\SODIUM PHOSPHATE,DIB
     Route: 010
  9. AMIODARONE HYDROCHLORIDE. [Suspect]
     Active Substance: AMIODARONE HYDROCHLORIDE
     Route: 065
  10. DOBUTAMINE [Suspect]
     Active Substance: DOBUTAMINE\DOBUTAMINE HYDROCHLORIDE
     Route: 065
  11. SODIUM BICARBONATE. [Suspect]
     Active Substance: SODIUM BICARBONATE
     Route: 065
  12. EPINEPHRINE. [Suspect]
     Active Substance: EPINEPHRINE
     Route: 065
  13. DOBUTAMINE [Suspect]
     Active Substance: DOBUTAMINE\DOBUTAMINE HYDROCHLORIDE
     Route: 065
  14. INSULIN [Suspect]
     Active Substance: INSULIN NOS
     Route: 065
     Dates: start: 20170715
  15. TAZOCILLINE [Concomitant]
     Active Substance: PIPERACILLIN SODIUM\TAZOBACTAM SODIUM
     Route: 065

REACTIONS (14)
  - Cardio-respiratory arrest [Fatal]
  - Respiratory failure [Fatal]
  - Overdose [Fatal]
  - Cerebral haematoma [Unknown]
  - Ventricular fibrillation [Fatal]
  - Hyperkalaemia [Fatal]
  - Cardiovascular insufficiency [Fatal]
  - Cerebrovascular accident [Unknown]
  - Malaise [Unknown]
  - Blood phosphorus increased [Unknown]
  - Renal failure [Fatal]
  - Medication error [None]
  - General physical health deterioration [Unknown]
  - Nervous system disorder [Fatal]

NARRATIVE: CASE EVENT DATE: 20170715
